FAERS Safety Report 15564319 (Version 1)
Quarter: 2018Q4

REPORT INFORMATION
  Report Type: Spontaneous
  Country: US (occurrence: US)
  Receive Date: 20181030
  Receipt Date: 20181030
  Transmission Date: 20190205
  Serious: Yes (Other)
  Sender: FDA-Public Use
  Company Number: US-TAKEDA-2018TUS031027

PATIENT

DRUGS (1)
  1. PONATINIB [Suspect]
     Active Substance: PONATINIB
     Indication: SQUAMOUS CELL CARCINOMA OF LUNG
     Dosage: 45 MG, QD
     Route: 048
     Dates: start: 20141121

REACTIONS (3)
  - Neoplasm progression [Unknown]
  - Febrile neutropenia [Unknown]
  - Hypertension [Unknown]

NARRATIVE: CASE EVENT DATE: 20141126
